FAERS Safety Report 20103066 (Version 1)
Quarter: 2021Q4

REPORT INFORMATION
  Report Type: Report from Study
  Country: LB (occurrence: LB)
  Receive Date: 20211123
  Receipt Date: 20211123
  Transmission Date: 20220303
  Serious: Yes (Hospitalization)
  Sender: FDA-Public Use
  Company Number: LB-NOVARTISPH-NVSC2021LB206793

PATIENT
  Age: 64 Year
  Sex: Female
  Weight: 80 kg

DRUGS (12)
  1. AFINITOR [Suspect]
     Active Substance: EVEROLIMUS
     Indication: Breast cancer
     Dosage: 10 MG, QD
     Route: 048
     Dates: start: 202107, end: 20210909
  2. AFINITOR [Suspect]
     Active Substance: EVEROLIMUS
     Dosage: 5 MG, QD (10 MG HALF TAB ONCE DAILY)
     Route: 048
     Dates: start: 20210909, end: 20211020
  3. AFINITOR [Suspect]
     Active Substance: EVEROLIMUS
     Dosage: 1 DF, QD ( 5 MG)
     Route: 048
     Dates: start: 20211020
  4. CRETOR [Concomitant]
     Indication: Product used for unknown indication
     Dosage: UNK
     Route: 065
  5. OMEPRAZOLE [Concomitant]
     Active Substance: OMEPRAZOLE
     Indication: Product used for unknown indication
     Dosage: UNK
     Route: 065
  6. BISOPROLOL FUMARATE [Concomitant]
     Active Substance: BISOPROLOL FUMARATE
     Indication: Product used for unknown indication
     Dosage: UNK
     Route: 065
  7. CI CAL D [Concomitant]
     Indication: Product used for unknown indication
     Dosage: UNK
     Route: 065
  8. MAGNESIUM B [Concomitant]
     Indication: Product used for unknown indication
     Dosage: UNK
     Route: 065
  9. CHOLECALCIFEROL [Concomitant]
     Active Substance: CHOLECALCIFEROL
     Indication: Product used for unknown indication
     Dosage: UNK
     Route: 065
  10. FENOFIBRATE [Concomitant]
     Active Substance: FENOFIBRATE
     Indication: Product used for unknown indication
     Dosage: UNK
     Route: 065
  11. ASPICOR [Concomitant]
     Indication: Product used for unknown indication
     Dosage: UNK
     Route: 065
  12. NEUROBION [Concomitant]
     Active Substance: CYANOCOBALAMIN\PYRIDOXINE\THIAMINE
     Indication: Product used for unknown indication
     Dosage: UNK
     Route: 065

REACTIONS (6)
  - Decreased appetite [Not Recovered/Not Resolved]
  - Metastases to abdominal cavity [Not Recovered/Not Resolved]
  - Wrong technique in product usage process [Recovered/Resolved]
  - Stomatitis [Recovered/Resolved]
  - Nausea [Not Recovered/Not Resolved]
  - Anal fissure [Recovering/Resolving]

NARRATIVE: CASE EVENT DATE: 20210801
